FAERS Safety Report 9866669 (Version 2)
Quarter: 2015Q3

REPORT INFORMATION
  Report Type: Spontaneous
  Country: US (occurrence: US)
  Receive Date: 20140204
  Receipt Date: 20150818
  Transmission Date: 20151125
  Serious: No
  Sender: FDA-Public Use
  Company Number: US-BIOGENIDEC-2014BI008179

PATIENT
  Sex: Female
  Weight: 77 kg

DRUGS (10)
  1. MOBIC [Concomitant]
     Active Substance: MELOXICAM
  2. DETROL LA [Concomitant]
     Active Substance: TOLTERODINE TARTRATE
  3. NUVIGIL [Concomitant]
     Active Substance: ARMODAFINIL
  4. AMPYRA [Concomitant]
     Active Substance: DALFAMPRIDINE
     Route: 048
  5. VIIBRYD [Concomitant]
     Active Substance: VILAZODONE HYDROCHLORIDE
  6. TECFIDERA [Suspect]
     Active Substance: DIMETHYL FUMARATE
     Indication: PRODUCT USED FOR UNKNOWN INDICATION
     Route: 048
  7. CYMBALTA [Concomitant]
     Active Substance: DULOXETINE HYDROCHLORIDE
  8. LISINOPRIL. [Concomitant]
     Active Substance: LISINOPRIL
  9. XANAX [Concomitant]
     Active Substance: ALPRAZOLAM
  10. SIMVASTATIN. [Concomitant]
     Active Substance: SIMVASTATIN

REACTIONS (5)
  - Nausea [Unknown]
  - Abdominal pain upper [Unknown]
  - Flushing [Unknown]
  - Depression [Unknown]
  - Diarrhoea [Unknown]
